FAERS Safety Report 20517890 (Version 1)
Quarter: 2022Q1

REPORT INFORMATION
  Report Type: Spontaneous
  Country: US (occurrence: None)
  Receive Date: 20220224
  Receipt Date: 20220224
  Transmission Date: 20220424
  Serious: No
  Sender: FDA-Public Use
  Company Number: None

PATIENT
  Age: 41 Year
  Sex: Female
  Weight: 83.25 kg

DRUGS (9)
  1. CILGAVIMAB [Suspect]
     Active Substance: CILGAVIMAB
     Indication: COVID-19
     Dosage: OTHER ROUTE : INJECTION INTO GLUTEAL MUSCLE;?
     Route: 050
     Dates: start: 20220224, end: 20220224
  2. TIXAGEVIMAB [Suspect]
     Active Substance: TIXAGEVIMAB
  3. RITUXIMAB [Concomitant]
     Active Substance: RITUXIMAB
  4. SYNTHROID [Concomitant]
     Active Substance: LEVOTHYROXINE SODIUM
  5. UNSPECIFIED INGREDIENT [Concomitant]
     Active Substance: UNSPECIFIED INGREDIENT
  6. VITAMIN D [Concomitant]
     Active Substance: VITAMIN D NOS
  7. MAGNESIUM [Concomitant]
     Active Substance: MAGNESIUM
  8. TURMERIC [Concomitant]
  9. CURCUMIN [Concomitant]
     Active Substance: CURCUMIN

REACTIONS (3)
  - Injection site pain [None]
  - Injection site pain [None]
  - Discomfort [None]

NARRATIVE: CASE EVENT DATE: 20220224
